FAERS Safety Report 23215415 (Version 1)
Quarter: 2023Q4

REPORT INFORMATION
  Report Type: Spontaneous
  Country: US (occurrence: US)
  Receive Date: 20231122
  Receipt Date: 20231122
  Transmission Date: 20240109
  Serious: No
  Sender: FDA-Public Use
  Company Number: US-SA-SAC20231117001411

PATIENT
  Sex: Male
  Weight: 88.4 kg

DRUGS (3)
  1. DUPIXENT [Suspect]
     Active Substance: DUPILUMAB
     Indication: Dermatitis atopic
     Dosage: 300MG, EVERY 2 WEEKS
     Route: 058
  2. COD LIVER OIL [Concomitant]
     Active Substance: COD LIVER OIL
  3. CLOBETASOL [Concomitant]
     Active Substance: CLOBETASOL

REACTIONS (1)
  - Therapeutic response decreased [Unknown]
